FAERS Safety Report 11779356 (Version 3)
Quarter: 2016Q1

REPORT INFORMATION
  Report Type: Spontaneous
  Country: US (occurrence: None)
  Receive Date: 20151125
  Receipt Date: 20160121
  Transmission Date: 20160525
  Serious: Yes (Life-Threatening, Hospitalization, Other)
  Sender: FDA-Public Use
  Company Number: US-MDT-ADR-2015-02244

PATIENT
  Age: 60 Year
  Sex: Female

DRUGS (2)
  1. FENTANYL INTRATHECAL 125 MCG/ML [Suspect]
     Active Substance: FENTANYL
     Dosage: 25 MCG/DAY
  2. BACLOFEN INTRATHECAL 2369 MCG/ML [Suspect]
     Active Substance: BACLOFEN
     Indication: MUSCLE SPASTICITY
     Dosage: 473.8 MCG/DAY

REACTIONS (19)
  - Malaise [None]
  - Unresponsive to stimuli [None]
  - Respiratory arrest [None]
  - Cognitive disorder [None]
  - Headache [None]
  - Overdose [None]
  - Coma [None]
  - Confusional state [None]
  - Somnolence [None]
  - Sedation [None]
  - Altered state of consciousness [None]
  - Burning sensation [None]
  - Fatigue [None]
  - Weight decreased [None]
  - Incorrect route of drug administration [None]
  - Nausea [None]
  - Toxic encephalopathy [None]
  - Incorrect dose administered [None]
  - Gait disturbance [None]
